FAERS Safety Report 13627699 (Version 1)
Quarter: 2017Q2

REPORT INFORMATION
  Report Type: Spontaneous
  Country: US (occurrence: US)
  Receive Date: 20170531
  Receipt Date: 20170531
  Transmission Date: 20170830
  Serious: Yes (Disabling, Other)
  Sender: FDA-Public Use
  Company Number: US-ASTELLAS-1563619

PATIENT
  Age: 77 Year
  Sex: Female
  Weight: 72 kg

DRUGS (10)
  1. TARCEVA [Suspect]
     Active Substance: ERLOTINIB HYDROCHLORIDE
     Indication: LUNG NEOPLASM MALIGNANT
     Route: 048
     Dates: start: 20150402
  2. TARCEVA [Suspect]
     Active Substance: ERLOTINIB HYDROCHLORIDE
     Route: 048
     Dates: start: 20150403
  3. TARCEVA [Suspect]
     Active Substance: ERLOTINIB HYDROCHLORIDE
     Route: 048
  4. CARDIZEM [Concomitant]
     Active Substance: DILTIAZEM HYDROCHLORIDE
  5. TARCEVA [Suspect]
     Active Substance: ERLOTINIB HYDROCHLORIDE
     Dosage: 100 MG PO EVERY OTHER DAY
     Route: 048
     Dates: start: 20150404
  6. LEVOTHYROXINE. [Concomitant]
     Active Substance: LEVOTHYROXINE
  7. LIPITOR [Concomitant]
     Active Substance: ATORVASTATIN CALCIUM
     Indication: BLOOD CHOLESTEROL INCREASED
     Dosage: 1 EVERY MON/THURS
     Route: 048
  8. BIOTIN [Concomitant]
     Active Substance: BIOTIN
  9. TARCEVA [Suspect]
     Active Substance: ERLOTINIB HYDROCHLORIDE
     Route: 048
     Dates: start: 20150429
  10. TARCEVA [Suspect]
     Active Substance: ERLOTINIB HYDROCHLORIDE
     Route: 048
     Dates: start: 20150401

REACTIONS (21)
  - Rash [Unknown]
  - Dry skin [Unknown]
  - Alopecia [Unknown]
  - Cystitis [Recovered/Resolved]
  - Muscle spasms [Unknown]
  - Oropharyngeal pain [Unknown]
  - Malaise [Unknown]
  - Pharyngeal disorder [Unknown]
  - Oesophagitis [Unknown]
  - Drug dose omission [Unknown]
  - Malaise [Recovering/Resolving]
  - Dyspnoea [Recovered/Resolved]
  - Nausea [Recovering/Resolving]
  - Dysphagia [Unknown]
  - Pruritus [Unknown]
  - Diarrhoea [Unknown]
  - Nausea [Unknown]
  - Infection [Unknown]
  - Diarrhoea [Recovering/Resolving]
  - Weight increased [Unknown]
  - Tremor [Unknown]

NARRATIVE: CASE EVENT DATE: 20150409
